FAERS Safety Report 7387236-5 (Version None)
Quarter: 2011Q1

REPORT INFORMATION
  Report Type: 
  Country: None (occurrence: None)
  Receive Date: 20110331
  Receipt Date: 20110327
  Transmission Date: 20110831
  Serious: Yes (Hospitalization)
  Sender: FDA-Public Use
  Company Number: NL-MEDIMMUNE-MEDI-0011906

PATIENT
  Sex: Male
  Weight: 7.9 kg

DRUGS (3)
  1. SYNAGIS [Suspect]
     Route: 030
     Dates: start: 20110326, end: 20110326
  2. SYNAGIS [Suspect]
     Route: 030
     Dates: start: 20101007, end: 20101007
  3. SYNAGIS [Suspect]
     Route: 030
     Dates: start: 20101104, end: 20110222

REACTIONS (6)
  - DYSPNOEA [None]
  - EAR INFECTION [None]
  - NASOPHARYNGITIS [None]
  - PHARYNGITIS [None]
  - PYREXIA [None]
  - EAR PAIN [None]
